FAERS Safety Report 9631736 (Version 4)
Quarter: 2013Q4

REPORT INFORMATION
  Report Type: Spontaneous
  Country: US (occurrence: US)
  Receive Date: 20131018
  Receipt Date: 20131217
  Transmission Date: 20140711
  Serious: No
  Sender: FDA-Public Use
  Company Number: US-009507513-1310USA007016

PATIENT
  Sex: Female
  Weight: 58.96 kg

DRUGS (1)
  1. IMPLANON [Suspect]
     Indication: CONTRACEPTION
     Dosage: 68 MG, ONE ROD EVERY THREE YEARS
     Route: 058
     Dates: start: 201210, end: 20131118

REACTIONS (2)
  - Device breakage [Recovered/Resolved]
  - No adverse event [Unknown]
